FAERS Safety Report 9573125 (Version 1)
Quarter: 2013Q4

REPORT INFORMATION
  Report Type: Spontaneous
  Country: US (occurrence: US)
  Receive Date: 20131001
  Receipt Date: 20131001
  Transmission Date: 20140711
  Serious: No
  Sender: FDA-Public Use
  Company Number: US-BIOGENIDEC-2013BI069950

PATIENT
  Sex: Female

DRUGS (6)
  1. TECFIDERA [Suspect]
     Indication: MULTIPLE SCLEROSIS
     Route: 048
     Dates: start: 20130611
  2. LEVOTHYROXINE [Concomitant]
  3. CRESTOR [Concomitant]
  4. FISH OIL [Concomitant]
  5. AMBIEN [Concomitant]
  6. LISINOPRIL [Concomitant]

REACTIONS (1)
  - Weight increased [Unknown]
